FAERS Safety Report 5487668-6 (Version None)
Quarter: 2007Q4

REPORT INFORMATION
  Report Type: 
  Country: None (occurrence: None)
  Receive Date: 20071017
  Receipt Date: 20071005
  Transmission Date: 20080405
  Serious: Yes (Other)
  Sender: FDA-Public Use
  Company Number: PHBS2007JP16111

PATIENT
  Age: 40 Year
  Sex: Male

DRUGS (5)
  1. CICLOSPORIN [Suspect]
     Indication: RENAL TRANSPLANT
     Route: 065
     Dates: start: 19960801
  2. PREDNISOLONE [Suspect]
     Indication: RENAL TRANSPLANT
     Dates: start: 19960801
  3. BREDININ [Suspect]
     Indication: RENAL TRANSPLANT
     Dosage: 375 MG/D
     Route: 048
     Dates: start: 19960801
  4. CELLCEPT [Concomitant]
     Indication: RENAL TRANSPLANT
     Dosage: 1500 MG/D
     Route: 048
     Dates: start: 20040101
  5. METHYLPREDNISOLONE SODIUM SUCCINATE [Concomitant]
     Dosage: 500 MG/D
     Route: 041

REACTIONS (7)
  - BLOOD URINE PRESENT [None]
  - DISEASE RECURRENCE [None]
  - GLOMERULONEPHRITIS PROLIFERATIVE [None]
  - PNEUMOCYSTIS JIROVECI PNEUMONIA [None]
  - PROTEIN URINE PRESENT [None]
  - RENAL CELL CARCINOMA STAGE UNSPECIFIED [None]
  - TONSILLECTOMY [None]
